FAERS Safety Report 9295155 (Version 3)
Quarter: 2013Q2

REPORT INFORMATION
  Report Type: Report from Study
  Country: NL (occurrence: NL)
  Receive Date: 20130517
  Receipt Date: 20130624
  Transmission Date: 20140414
  Serious: Yes (Life-Threatening, Hospitalization, Other)
  Sender: FDA-Public Use
  Company Number: NL-GENZYME-CLOF-1002621

PATIENT
  Age: 66 Year
  Sex: Male
  Weight: 68 kg

DRUGS (7)
  1. EVOLTRA [Suspect]
     Indication: ACUTE MYELOID LEUKAEMIA
     Dosage: 19 MG, QD
     Route: 042
     Dates: start: 20130410, end: 20130414
  2. CYTARABINE [Suspect]
     Indication: ACUTE MYELOID LEUKAEMIA
     Dosage: 2X1800 MG, UNK
     Route: 042
     Dates: start: 20130410
  3. AMSACRINE [Suspect]
     Indication: ACUTE MYELOID LEUKAEMIA
     Dosage: 220 MG, UNK
     Route: 042
     Dates: start: 20130413
  4. CILASTATIN [Concomitant]
     Indication: PRODUCT USED FOR UNKNOWN INDICATION
     Dosage: UNK
     Route: 042
     Dates: start: 20130419
  5. ANIDULAFUNGIN [Concomitant]
     Indication: PRODUCT USED FOR UNKNOWN INDICATION
     Dosage: 100 MG, UNK
     Route: 042
     Dates: start: 20130428
  6. ACICLOVIR [Concomitant]
     Indication: STOMATITIS
     Dosage: 260 MG, UNK
     Route: 042
     Dates: start: 20130428
  7. VANCOMYCIN [Concomitant]
     Indication: PRODUCT USED FOR UNKNOWN INDICATION
     Dosage: 1000 NG, UNK
     Route: 042
     Dates: start: 20130428

REACTIONS (4)
  - Respiratory failure [Recovered/Resolved]
  - Febrile neutropenia [Unknown]
  - Klebsiella infection [Unknown]
  - Ileus paralytic [Recovered/Resolved]
